FAERS Safety Report 14311132 (Version 3)
Quarter: 2018Q1

REPORT INFORMATION
  Report Type: Spontaneous
  Country: IT (occurrence: IT)
  Receive Date: 20171221
  Receipt Date: 20180309
  Transmission Date: 20180509
  Serious: Yes (Other)
  Sender: FDA-Public Use
  Company Number: IT-009507513-1712ITA008985

PATIENT
  Age: 79 Year
  Sex: Female

DRUGS (6)
  1. ZEPATIER [Suspect]
     Active Substance: ELBASVIR\GRAZOPREVIR
     Indication: HEPATITIS CHRONIC ACTIVE
     Dosage: 150 MG, QD
     Route: 048
     Dates: start: 20171108, end: 20171111
  2. RAMIPRIL. [Suspect]
     Active Substance: RAMIPRIL
     Dosage: 2.5 MG, QD
     Route: 048
  3. LASIX [Concomitant]
     Active Substance: FUROSEMIDE
  4. CYMBALTA [Concomitant]
     Active Substance: DULOXETINE HYDROCHLORIDE
  5. OMEPRAZOLE. [Suspect]
     Active Substance: OMEPRAZOLE
     Dosage: 20 MG, QD
     Route: 048
     Dates: start: 20090101, end: 20171110
  6. BISOPROLOL FUMARATE. [Concomitant]
     Active Substance: BISOPROLOL FUMARATE

REACTIONS (3)
  - Nausea [Recovered/Resolved]
  - Cardiac failure [Recovered/Resolved]
  - Retching [Recovered/Resolved]

NARRATIVE: CASE EVENT DATE: 20171110
